FAERS Safety Report 10537731 (Version 1)
Quarter: 2014Q4

REPORT INFORMATION
  Report Type: Spontaneous
  Country: FR (occurrence: None)
  Receive Date: 20141021
  Receipt Date: 20141021
  Transmission Date: 20150529
  Serious: Yes (Life-Threatening, Other)
  Sender: FDA-Public Use
  Company Number: FK201404116

PATIENT
  Age: 40 Year
  Sex: Male

DRUGS (1)
  1. MORPHINE (MANUFACTURER UNKNOWN) (MORPHINE) (MORPHINE) [Suspect]
     Active Substance: MORPHINE
     Indication: PRODUCT USED FOR UNKNOWN INDICATION

REACTIONS (12)
  - Altered state of consciousness [None]
  - Emotional disorder [None]
  - Suicide attempt [None]
  - Blood pressure decreased [None]
  - Intentional overdose [None]
  - Hypoxia [None]
  - Miosis [None]
  - Toxicity to various agents [None]
  - Disorientation [None]
  - Memory impairment [None]
  - Respiratory depression [None]
  - Anxiety [None]
